FAERS Safety Report 8949397 (Version 2)
Quarter: 2012Q4

REPORT INFORMATION
  Report Type: 
  Country: US (occurrence: US)
  Receive Date: 20121206
  Receipt Date: 20121214
  Transmission Date: 20130627
  Serious: Yes (Life-Threatening, Hospitalization, Other)
  Sender: FDA-Public Use
  Company Number: US-ELI_LILLY_AND_COMPANY-US201210008458

PATIENT
  Age: 39 Year
  Sex: Male
  Weight: 72.56 kg

DRUGS (12)
  1. ZYPREXA RELPREVV [Suspect]
     Indication: BIPOLAR I DISORDER
     Dosage: 405 mg, monthly (1/M)
     Route: 030
     Dates: start: 20120926
  2. ZYPREXA RELPREVV [Suspect]
     Dosage: 405 mg, monthly (1/M)
     Route: 030
     Dates: start: 20121024
  3. ZYPREXA RELPREVV [Suspect]
     Dosage: 405 mg, monthly (1/M)
     Dates: start: 20121107
  4. ZYPREXA [Suspect]
     Dosage: 10 mg, each evening
     Dates: end: 20121003
  5. ANTABUSE [Concomitant]
     Dosage: 250 mg, qod
     Route: 048
  6. SEROQUEL [Concomitant]
     Dosage: UNK
  7. CELEXA [Concomitant]
     Dosage: UNK, unknown
     Route: 048
  8. GABAPENTIN [Concomitant]
     Dosage: 120 mg, bid
     Route: 048
  9. GEODON [Concomitant]
     Dosage: 160 mg, each evening
     Route: 048
  10. NICOTINE [Concomitant]
     Dosage: 1 DF, qd
     Route: 062
  11. WELLBUTRIN XL [Concomitant]
     Dosage: 450 mg, each morning
     Route: 048
  12. CLONAZEPAM [Concomitant]
     Dosage: 1.5 mg, bid
     Route: 048

REACTIONS (12)
  - Coma [Recovered/Resolved]
  - Confusional state [Recovered/Resolved]
  - Fatigue [Recovered/Resolved]
  - Lethargy [Recovered/Resolved]
  - Dysarthria [Recovered/Resolved]
  - Disorientation [Recovered/Resolved]
  - Gait disturbance [Recovered/Resolved]
  - Asthenia [Recovered/Resolved]
  - Delirium [Recovered/Resolved]
  - Pneumonia aspiration [Recovered/Resolved]
  - Prescribed overdose [Recovered/Resolved]
  - Prescribed overdose [Unknown]
